FAERS Safety Report 21959789 (Version 1)
Quarter: 2023Q1

REPORT INFORMATION
  Report Type: Spontaneous
  Country: US (occurrence: US)
  Receive Date: 20230206
  Receipt Date: 20230206
  Transmission Date: 20230417
  Serious: Yes (Hospitalization, Other)
  Sender: FDA-Public Use
  Company Number: US-Techdow-2023Techdow000011

PATIENT
  Age: 56 Year
  Sex: Male

DRUGS (3)
  1. HEPARIN SODIUM [Suspect]
     Active Substance: HEPARIN SODIUM
     Indication: Anticoagulant therapy
  2. HYDROXYCHLOROQUINE [Concomitant]
     Active Substance: HYDROXYCHLOROQUINE
  3. AZITHROMYCIN [Concomitant]
     Active Substance: AZITHROMYCIN

REACTIONS (4)
  - Heparin-induced thrombocytopenia [Unknown]
  - Acute respiratory distress syndrome [Unknown]
  - Deep vein thrombosis [Unknown]
  - Pneumothorax [Unknown]
